FAERS Safety Report 9172167 (Version 2)
Quarter: 2013Q2

REPORT INFORMATION
  Report Type: Spontaneous
  Country: None (occurrence: US)
  Receive Date: 20130319
  Receipt Date: 20130514
  Transmission Date: 20140414
  Serious: No
  Sender: FDA-Public Use
  Company Number: US-TEVA-391203USA

PATIENT
  Age: 66 Year
  Sex: Male

DRUGS (7)
  1. PROAIR HFA [Suspect]
     Dosage: PRN
     Route: 055
  2. PERCOCET [Concomitant]
     Indication: PAIN
     Dosage: 10/650 QID
     Route: 048
  3. OXYCONTIN [Concomitant]
     Indication: PAIN
     Dosage: TID
     Route: 048
  4. CATAPRES [Concomitant]
  5. FLOMAX [Concomitant]
  6. PINDOLOL [Concomitant]
  7. PERI TOTE PENSAID SOLUTION [Concomitant]

REACTIONS (2)
  - Drug screen positive [Unknown]
  - Breath odour [Unknown]
